FAERS Safety Report 15488571 (Version 1)
Quarter: 2018Q4

REPORT INFORMATION
  Report Type: Spontaneous
  Country: US (occurrence: US)
  Receive Date: 20181004
  Receipt Date: 20181004
  Transmission Date: 20190205
  Serious: No
  Sender: FDA-Public Use
  Company Number: None

PATIENT
  Age: 58 Year
  Sex: Male

DRUGS (1)
  1. TALTZ [Suspect]
     Active Substance: IXEKIZUMAB
     Dates: start: 201806

REACTIONS (3)
  - Injection site reaction [None]
  - Nausea [None]
  - Dermatitis bullous [None]

NARRATIVE: CASE EVENT DATE: 20181002
